FAERS Safety Report 5496620-6 (Version None)
Quarter: 2007Q4

REPORT INFORMATION
  Report Type: 
  Country: None (occurrence: None)
  Receive Date: 20071025
  Receipt Date: 20070626
  Transmission Date: 20080405
  Serious: Yes (Other)
  Sender: FDA-Public Use
  Company Number: A0660224A

PATIENT
  Age: 87 Year
  Sex: Male

DRUGS (6)
  1. ADVAIR DISKUS 100/50 [Suspect]
     Indication: DRUG USE FOR UNKNOWN INDICATION
     Dosage: 1PUFF TWICE PER DAY
     Route: 055
     Dates: start: 20050101
  2. CRESTOR [Concomitant]
  3. TRICOR [Concomitant]
  4. COMBIVENT [Concomitant]
  5. ASPIRIN [Concomitant]
  6. NYSTATIN [Concomitant]

REACTIONS (3)
  - MOUTH ULCERATION [None]
  - ORAL PAIN [None]
  - PNEUMONIA [None]
